FAERS Safety Report 14778850 (Version 2)
Quarter: 2018Q2

REPORT INFORMATION
  Report Type: Spontaneous
  Country: BE (occurrence: BE)
  Receive Date: 20180419
  Receipt Date: 20180516
  Transmission Date: 20180711
  Serious: Yes (Disabling)
  Sender: FDA-Public Use
  Company Number: BE-ROCHE-2107129

PATIENT
  Age: 69 Year
  Sex: Female
  Weight: 65.5 kg

DRUGS (10)
  1. PERJETA [Suspect]
     Active Substance: PERTUZUMAB
     Dosage: 18/12/17 : PERJETA 840MG (DOSE DE CHARGE)?08/01/18 : PERJETA 420MG?29/01/18 : PERJETA 420MG?19/02
     Route: 042
     Dates: start: 20171218
  2. HERCEPTIN [Suspect]
     Active Substance: TRASTUZUMAB
     Indication: BREAST CANCER
     Dosage: 18/12/17 : HERCEPTINE 512MG (DOSE DE CHARGE 8MG/KG))?08/01/18 : HERCEPTINE 387MG (6MG/KG)?29/01.
     Route: 042
     Dates: start: 20171218
  3. PERJETA [Suspect]
     Active Substance: PERTUZUMAB
     Dosage: 18/12/17 : PERJETA 840MG (DOSE DE CHARGE)?08/01/18 : PERJETA 420MG?29/01/18 : PERJETA 420MG?19/02
     Route: 042
     Dates: start: 20180129
  4. HERCEPTIN [Suspect]
     Active Substance: TRASTUZUMAB
     Route: 042
     Dates: start: 20180219, end: 20180220
  5. PERJETA [Suspect]
     Active Substance: PERTUZUMAB
     Indication: BREAST CANCER
     Dosage: 18/12/17 : PERJETA 840MG (DOSE DE CHARGE)?08/01/18 : PERJETA 420MG?29/01/18 : PERJETA 420MG?19/02
     Route: 042
     Dates: start: 20171218
  6. PERJETA [Suspect]
     Active Substance: PERTUZUMAB
     Dosage: 18/12/17 : PERJETA 840MG (DOSE DE CHARGE)?08/01/18 : PERJETA 420MG?29/01/18 : PERJETA 420MG?19/02
     Route: 042
     Dates: start: 20180108
  7. PERJETA [Suspect]
     Active Substance: PERTUZUMAB
     Route: 042
     Dates: start: 20180219, end: 20180220
  8. HERCEPTIN [Suspect]
     Active Substance: TRASTUZUMAB
     Dosage: (6MG/KG)
     Route: 042
     Dates: start: 20180108
  9. HERCEPTIN [Suspect]
     Active Substance: TRASTUZUMAB
     Dosage: (8MG/KG)
     Route: 042
     Dates: start: 20171218
  10. HERCEPTIN [Suspect]
     Active Substance: TRASTUZUMAB
     Route: 042
     Dates: start: 20180129

REACTIONS (2)
  - Tricuspid valve incompetence [Recovering/Resolving]
  - Pulmonary hypertension [Recovering/Resolving]

NARRATIVE: CASE EVENT DATE: 20180308
